FAERS Safety Report 9705627 (Version 1)
Quarter: 2013Q4

REPORT INFORMATION
  Report Type: Spontaneous
  Country: US (occurrence: US)
  Receive Date: 20131122
  Receipt Date: 20131122
  Transmission Date: 20140711
  Serious: No
  Sender: FDA-Public Use
  Company Number: US-GILEAD-2008-0017256

PATIENT
  Age: 68 Year
  Sex: Female

DRUGS (10)
  1. LETAIRIS [Suspect]
     Indication: PULMONARY HYPERTENSION
     Route: 048
  2. VIAGRA [Concomitant]
     Route: 048
  3. VIAGRA [Concomitant]
  4. KLOR-CON M20 [Concomitant]
     Route: 048
  5. OMEPRAZOLE [Concomitant]
     Route: 048
  6. SINEMET [Concomitant]
     Route: 048
  7. WARFARIN [Concomitant]
     Route: 048
  8. PROZAC [Concomitant]
     Route: 048
  9. FLONASE [Concomitant]
     Route: 048
  10. SPIRONOLACT [Concomitant]
     Route: 048

REACTIONS (3)
  - Fatigue [None]
  - Malaise [None]
  - Blood pressure decreased [Recovered/Resolved]
